FAERS Safety Report 8880735 (Version 1)
Quarter: 2012Q4

REPORT INFORMATION
  Report Type: 
  Country: US (occurrence: US)
  Receive Date: 20121101
  Receipt Date: 20121101
  Transmission Date: 20130627
  Serious: Yes (Hospitalization)
  Sender: FDA-Public Use
  Company Number: US-GLAXOSMITHKLINE-A0999467A

PATIENT
  Age: 64 Year
  Sex: Male
  Weight: 104.5 kg

DRUGS (10)
  1. VOTRIENT [Suspect]
     Indication: PRODUCT USED FOR UNKNOWN INDICATION
     Dosage: 200MG Twice per day
     Route: 048
  2. PREDNISONE [Concomitant]
  3. FLUDROCORTISONE [Concomitant]
  4. LISINOPRIL [Concomitant]
  5. NORVASC [Concomitant]
  6. LEXAPRO [Concomitant]
  7. ALLOPURINOL [Concomitant]
  8. DIAZEPAM [Concomitant]
  9. LYRICA [Concomitant]
  10. ALBUTEROL [Concomitant]

REACTIONS (4)
  - Cerebrovascular accident [Unknown]
  - Pneumonia [Unknown]
  - Dysphagia [Unknown]
  - Weight decreased [Unknown]
